FAERS Safety Report 4818339-4 (Version None)
Quarter: 2005Q4

REPORT INFORMATION
  Report Type: 
  Country: None (occurrence: None)
  Receive Date: 20051031
  Receipt Date: 20051020
  Transmission Date: 20060501
  Serious: Yes (Hospitalization)
  Sender: FDA-Public Use
  Company Number: 2005EU002112

PATIENT
  Age: 48 Year
  Sex: Male

DRUGS (3)
  1. PROGRAF [Suspect]
     Indication: RENAL TRANSPLANT
     Dosage: 6.00 MG, UID/QD, ORAL
     Route: 048
     Dates: start: 20050113, end: 20050223
  2. IMURAN [Suspect]
     Indication: RENAL TRANSPLANT
     Dosage: D, ORAL
     Route: 048
     Dates: start: 20050113, end: 20050222
  3. ALLOPURINOL [Suspect]
     Indication: RENAL TRANSPLANT
     Dosage: 200.00 MG, UID/QD, ORAL
     Route: 048
     Dates: end: 20050223

REACTIONS (3)
  - AGRANULOCYTOSIS [None]
  - BONE MARROW FAILURE [None]
  - LUNG DISORDER [None]
